FAERS Safety Report 9774030 (Version 4)
Quarter: 2014Q1

REPORT INFORMATION
  Report Type: Spontaneous
  Country: US (occurrence: US)
  Receive Date: 20131220
  Receipt Date: 20140228
  Transmission Date: 20141002
  Serious: Yes (Hospitalization)
  Sender: FDA-Public Use
  Company Number: US-BIOGENIDEC-2013BI119666

PATIENT
  Age: 54 Year
  Sex: Male

DRUGS (3)
  1. TYSABRI [Suspect]
     Indication: MULTIPLE SCLEROSIS
     Route: 042
     Dates: start: 20070605, end: 20080408
  2. TYSABRI [Suspect]
     Indication: MULTIPLE SCLEROSIS
     Route: 042
     Dates: start: 20081105, end: 20131101
  3. AVONEX [Concomitant]
     Indication: MULTIPLE SCLEROSIS
     Route: 030
     Dates: start: 20020104

REACTIONS (6)
  - Urinary tract infection [Not Recovered/Not Resolved]
  - Fall [Recovered/Resolved]
  - Fibula fracture [Recovered/Resolved]
  - Localised infection [Recovered/Resolved]
  - Cognitive disorder [Not Recovered/Not Resolved]
  - Tibia fracture [Unknown]
